FAERS Safety Report 19156824 (Version 2)
Quarter: 2021Q2

REPORT INFORMATION
  Report Type: Other
  Country: DE (occurrence: DE)
  Receive Date: 20210420
  Receipt Date: 20210529
  Transmission Date: 20210717
  Serious: Yes (Other)
  Sender: FDA-Public Use
  Company Number: DE-ROCHE-2808361

PATIENT
  Age: 47 Year
  Sex: Female

DRUGS (3)
  1. DIMETHYL FUMARATE [Concomitant]
     Active Substance: DIMETHYL FUMARATE
     Dates: start: 20140828, end: 201508
  2. OCRELIZUMAB. [Suspect]
     Active Substance: OCRELIZUMAB
     Indication: RELAPSING MULTIPLE SCLEROSIS
     Dosage: MOST RECENT DOSE OF 03/SEP/2020
     Route: 042
     Dates: start: 20200820
  3. FINGOLIMOD. [Concomitant]
     Active Substance: FINGOLIMOD
     Dates: start: 20180206, end: 20190411

REACTIONS (1)
  - Salivary gland cancer [Not Recovered/Not Resolved]

NARRATIVE: CASE EVENT DATE: 20210330
